FAERS Safety Report 20037662 (Version 5)
Quarter: 2021Q4

REPORT INFORMATION
  Report Type: Report from Study
  Country: US (occurrence: US)
  Receive Date: 20211105
  Receipt Date: 20211225
  Transmission Date: 20220303
  Serious: Yes (Death, Hospitalization)
  Sender: FDA-Public Use
  Company Number: US-NOVARTISTESTPH-NVSC2021US251973

PATIENT
  Age: 67 Year
  Sex: Female
  Weight: 49.887 kg

DRUGS (4)
  1. TREPROSTINIL [Suspect]
     Active Substance: TREPROSTINIL
     Indication: Pulmonary arterial hypertension
     Dosage: UNK, CONT
     Route: 042
  2. TREPROSTINIL [Suspect]
     Active Substance: TREPROSTINIL
     Dosage: 80 NG/KG/MIN, CONT
     Route: 042
  3. TREPROSTINIL [Suspect]
     Active Substance: TREPROSTINIL
     Dosage: 70 NG/KG/MIN , CONT
     Route: 042
     Dates: start: 20211101
  4. VELETRI [Suspect]
     Active Substance: EPOPROSTENOL
     Indication: Product used for unknown indication
     Dosage: UNK
     Route: 065

REACTIONS (14)
  - Death [Fatal]
  - Bacterial infection [Unknown]
  - Face injury [Unknown]
  - Fall [Unknown]
  - Chills [Unknown]
  - Fracture [Unknown]
  - Asthenia [Unknown]
  - Infection [Unknown]
  - Oedema [Unknown]
  - Dizziness [Unknown]
  - Abdominal pain upper [Unknown]
  - Hypotension [Unknown]
  - Rash [Recovered/Resolved]
  - Diarrhoea [Unknown]

NARRATIVE: CASE EVENT DATE: 20211203
